FAERS Safety Report 7384393-1 (Version None)
Quarter: 2011Q1

REPORT INFORMATION
  Report Type: 
  Country: None (occurrence: None)
  Receive Date: 20110330
  Receipt Date: 20101018
  Transmission Date: 20110831
  Serious: Yes (Hospitalization)
  Sender: FDA-Public Use
  Company Number: US-BAYER-201024480NA

PATIENT
  Sex: Female
  Weight: 59 kg

DRUGS (2)
  1. YAZ [Suspect]
     Indication: PREMENSTRUAL SYNDROME
     Dosage: UNK
     Route: 048
     Dates: start: 20070301, end: 20080616
  2. HYDROCODONE BITARTRATE AND ACETAMINOPHEN [Concomitant]

REACTIONS (6)
  - HEART RATE INCREASED [None]
  - PULMONARY THROMBOSIS [None]
  - HAEMORRHAGIC DISORDER [None]
  - CHEST PAIN [None]
  - DYSPNOEA [None]
  - PULMONARY EMBOLISM [None]
